FAERS Safety Report 12326404 (Version 1)
Quarter: 2016Q2

REPORT INFORMATION
  Report Type: Spontaneous
  Country: None (occurrence: None)
  Receive Date: 20160502
  Receipt Date: 20160502
  Transmission Date: 20160815
  Serious: Yes (Disabling)
  Sender: FDA-Public Use
  Company Number: None

PATIENT
  Age: 30 Year
  Sex: Male
  Weight: 75 kg

DRUGS (1)
  1. LEVOFLOXACIN, 500MG [Suspect]
     Active Substance: LEVOFLOXACIN
     Route: 048
     Dates: start: 20160413, end: 20160430

REACTIONS (4)
  - Hypoaesthesia [None]
  - Headache [None]
  - Diplopia [None]
  - Hypoaesthesia oral [None]

NARRATIVE: CASE EVENT DATE: 20160430
